FAERS Safety Report 8803194 (Version 2)
Quarter: 2012Q4

REPORT INFORMATION
  Report Type: 
  Country: US (occurrence: US)
  Receive Date: 20120924
  Receipt Date: 20121023
  Transmission Date: 20130627
  Serious: Yes (Other)
  Sender: FDA-Public Use
  Company Number: US-ELI_LILLY_AND_COMPANY-US201209004003

PATIENT
  Age: 65 Year
  Sex: Male

DRUGS (2)
  1. HUMALOG LISPRO [Suspect]
     Indication: DIABETES MELLITUS
     Dosage: 35 u, prn
  2. LANTUS [Concomitant]

REACTIONS (4)
  - Retinal operation [Unknown]
  - Blood glucose increased [Unknown]
  - Drug dose omission [Recovered/Resolved]
  - Eye laser surgery [Unknown]
